FAERS Safety Report 10672228 (Version 1)
Quarter: 2014Q4

REPORT INFORMATION
  Report Type: Spontaneous
  Country: TR (occurrence: None)
  Receive Date: 20141222
  Receipt Date: 20141222
  Transmission Date: 20150529
  Serious: Yes (Disabling)
  Sender: FDA-Public Use
  Company Number: None

PATIENT
  Age: 26 Year
  Sex: Male
  Weight: 92 kg

DRUGS (1)
  1. XOLAIR [Suspect]
     Active Substance: OMALIZUMAB
     Indication: URTICARIA CHRONIC
     Dosage: 2 DOSES FROM EACH ARM
     Dates: start: 20141120, end: 20141220

REACTIONS (6)
  - Dizziness [None]
  - Blood pressure decreased [None]
  - Urticaria [None]
  - Vertigo [None]
  - Chest pain [None]
  - Nightmare [None]

NARRATIVE: CASE EVENT DATE: 20141120
